FAERS Safety Report 4779489-4 (Version None)
Quarter: 2005Q3

REPORT INFORMATION
  Report Type: 
  Country: None (occurrence: None)
  Receive Date: 20050923
  Receipt Date: 20050915
  Transmission Date: 20060218
  Serious: Yes (Other)
  Sender: FDA-Public Use
  Company Number: CIP05002165

PATIENT
  Age: 56 Year
  Sex: Female

DRUGS (3)
  1. ACTONEL [Suspect]
     Indication: OSTEOPOROSIS
     Dosage: 35 MG ONCE WEEKLY, ORAL
     Route: 048
     Dates: start: 20050701, end: 20050801
  2. EVISTA [Concomitant]
  3. SYNTHROID [Concomitant]

REACTIONS (2)
  - NEPHROLITHIASIS [None]
  - RENAL COLIC [None]
